FAERS Safety Report 24787793 (Version 1)
Quarter: 2024Q4

REPORT INFORMATION
  Report Type: Spontaneous
  Country: US (occurrence: US)
  Receive Date: 20241230
  Receipt Date: 20241230
  Transmission Date: 20250114
  Serious: No
  Sender: Harrow Health
  Company Number: US-IMP-2024001163

PATIENT
  Age: 78 Year
  Sex: Female

DRUGS (3)
  1. FRESHKOTE PRESERVATIVE FREE LUBRICANT EYE DROPS [Suspect]
     Active Substance: POLYVINYL ALCOHOL\POVIDONE
     Indication: Dry eye
     Dosage: MAYBE 2-3 TIMES DAILY IN EACH EYE
     Route: 047
  2. FRESHKOTE PRESERVATIVE FREE LUBRICANT EYE DROPS [Suspect]
     Active Substance: POLYVINYL ALCOHOL\POVIDONE
     Indication: Dry eye
     Dosage: MAYBE 2-3 TIMES DAILY IN EACH EYE
     Route: 047
  3. PATADAY [Concomitant]
     Active Substance: OLOPATADINE HYDROCHLORIDE
     Indication: Product used for unknown indication
     Route: 065

REACTIONS (5)
  - Product delivery mechanism issue [Unknown]
  - Liquid product physical issue [Unknown]
  - Inadequate aseptic technique in use of product [Unknown]
  - Intentional product misuse [Unknown]
  - Expired product administered [Unknown]

NARRATIVE: CASE EVENT DATE: 20241220
